FAERS Safety Report 8543456-5 (Version None)
Quarter: 2012Q3

REPORT INFORMATION
  Report Type: 
  Country: None (occurrence: None)
  Receive Date: 20120727
  Receipt Date: 20120723
  Transmission Date: 20120928
  Serious: Yes (Hospitalization)
  Sender: FDA-Public Use
  Company Number: PHHY2012FR064385

PATIENT
  Age: 68 Year
  Sex: Male

DRUGS (5)
  1. VALACYCLOVIR HYDROCHLORIDE [Concomitant]
  2. LEUCOVORIN CALCIUM [Concomitant]
  3. BACTRIM DS [Concomitant]
  4. EXJADE [Suspect]
     Indication: APLASIA PURE RED CELL
     Dosage: UNK
     Route: 048
     Dates: start: 20120420, end: 20120629
  5. ARANESP [Concomitant]
     Indication: APLASIA PURE RED CELL
     Dosage: UNK
     Dates: start: 20120420

REACTIONS (3)
  - PHLEBITIS [None]
  - RENAL FAILURE ACUTE [None]
  - BLOOD CREATININE INCREASED [None]
